FAERS Safety Report 9493534 (Version 2)
Quarter: 2013Q4

REPORT INFORMATION
  Report Type: Spontaneous
  Country: US (occurrence: US)
  Receive Date: 20130902
  Receipt Date: 20131212
  Transmission Date: 20140711
  Serious: No
  Sender: FDA-Public Use
  Company Number: US-PFIZER INC-2013249795

PATIENT
  Age: 43 Year
  Sex: Female

DRUGS (6)
  1. XELJANZ [Suspect]
     Indication: RHEUMATOID ARTHRITIS
     Dosage: 5 MG, 2X/DAY
     Route: 048
     Dates: start: 20130716, end: 20131205
  2. XELJANZ [Suspect]
     Dosage: 5 MG, 2X/DAY
     Route: 048
     Dates: start: 20130716, end: 20131205
  3. METHOTREXATE [Concomitant]
     Dosage: 2.5 MG, UNK
  4. PREDNISONE [Concomitant]
     Dosage: 1 MG, UNK
  5. ACTONEL [Concomitant]
     Dosage: 150 MG, UNK
  6. FOLIC ACID [Concomitant]
     Dosage: 400 UG, UNK

REACTIONS (3)
  - Treatment failure [Unknown]
  - Oedema peripheral [Unknown]
  - Joint stiffness [Unknown]
